FAERS Safety Report 19877063 (Version 1)
Quarter: 2021Q3

REPORT INFORMATION
  Report Type: Spontaneous
  Country: US (occurrence: US)
  Receive Date: 20210924
  Receipt Date: 20210924
  Transmission Date: 20211014
  Serious: No
  Sender: FDA-Public Use
  Company Number: US-JNJFOC-20210921982

PATIENT
  Sex: Male

DRUGS (1)
  1. MENS ROGAINE EXTRA STRENGTH [Suspect]
     Active Substance: MINOXIDIL
     Indication: ALOPECIA
     Dosage: USING THE DROPPER AS INDICATED ON THE INSTRUCTIONS
     Route: 065
     Dates: start: 20210506

REACTIONS (1)
  - Application site exfoliation [Unknown]

NARRATIVE: CASE EVENT DATE: 20210610
